FAERS Safety Report 5266736-8 (Version None)
Quarter: 2007Q1

REPORT INFORMATION
  Report Type: 
  Country: None (occurrence: None)
  Receive Date: 20070312
  Receipt Date: 20070227
  Transmission Date: 20070707
  Serious: Yes (Hospitalization)
  Sender: FDA-Public Use
  Company Number: GXKR2007GB02090

PATIENT
  Age: 63 Year
  Sex: Female

DRUGS (16)
  1. ASPIRIN [Suspect]
     Dosage: 75 MG, QD, ORAL
     Route: 048
  2. MELOXICAM [Suspect]
     Indication: RHEUMATOID ARTHRITIS
     Dosage: 15 MG, QD, ORAL
     Route: 048
     Dates: end: 20070130
  3. PREDNISOLONE [Suspect]
     Dosage: 5 MG, QD, UNK
  4. RISEDRONATE SODIUM [Suspect]
     Dosage: 35 MG, QW, UNK
  5. ALIMEMAZINE (ALIMEMAZINE) [Concomitant]
  6. ATORVASTATIN CALCIUM [Concomitant]
  7. ATROVENT [Concomitant]
  8. CO-CODAMOL (CODEINE PHOSPHATE, PARACETAMOL) [Concomitant]
  9. GTN (GLYCERYL TRINITRATE) [Concomitant]
  10. ISOSORBIDE MONONITRATE [Concomitant]
  11. NICORANDIL (NICORANDIL) [Concomitant]
  12. OMEPRAZOLE [Concomitant]
  13. SALBUTAMOL (SALBUTAMOL) [Concomitant]
  14. SANDOCAL (CALCIUM CARBONATE, COLECALCIFEROL, SODIUM) [Concomitant]
  15. SERETIDE (FLUTICASONE PROPIONATE, SALMETEROL XINAFOATE) [Concomitant]
  16. DILTIAZEM HYDROCHLORIDE [Concomitant]

REACTIONS (4)
  - BARRETT'S OESOPHAGUS [None]
  - DUODENAL ULCER [None]
  - DUODENITIS [None]
  - HELICOBACTER PYLORI IDENTIFICATION TEST POSITIVE [None]
